FAERS Safety Report 6876518-9 (Version None)
Quarter: 2010Q3

REPORT INFORMATION
  Report Type: 
  Country: None (occurrence: None)
  Receive Date: 20100727
  Receipt Date: 20100616
  Transmission Date: 20110219
  Serious: No
  Sender: FDA-Public Use
  Company Number: US-BAXTER-2010BH004333

PATIENT
  Sex: Female
  Weight: 74 kg

DRUGS (4)
  1. HEPARIN SODIUM [Suspect]
     Indication: SHOULDER OPERATION
     Route: 042
  2. HEPARIN SODIUM [Suspect]
     Indication: SURGERY
     Route: 042
  3. PREMARIN [Concomitant]
     Indication: PRODUCT USED FOR UNKNOWN INDICATION
     Route: 065
  4. MULTI-VITAMINS [Concomitant]
     Indication: PRODUCT USED FOR UNKNOWN INDICATION
     Route: 065

REACTIONS (1)
  - ADVERSE EVENT [None]
